FAERS Safety Report 20008433 (Version 1)
Quarter: 2021Q4

REPORT INFORMATION
  Report Type: Spontaneous
  Country: CN (occurrence: CN)
  Receive Date: 20211029
  Receipt Date: 20211029
  Transmission Date: 20220303
  Serious: Yes (Other)
  Sender: FDA-Public Use
  Company Number: CN-ROCHE-2944141

PATIENT
  Age: 83 Year
  Sex: Female

DRUGS (3)
  1. MABTHERA [Suspect]
     Active Substance: RITUXIMAB
     Indication: Marginal zone lymphoma
     Route: 065
  2. MABTHERA [Suspect]
     Active Substance: RITUXIMAB
     Indication: Marginal zone lymphoma
  3. BENDAMUSTINE [Concomitant]
     Active Substance: BENDAMUSTINE

REACTIONS (8)
  - Pyrexia [Unknown]
  - Rash vesicular [Unknown]
  - Nausea [Unknown]
  - Vomiting [Unknown]
  - Cough [Unknown]
  - Hypoxia [Unknown]
  - Myelosuppression [Unknown]
  - Off label use [Unknown]
